FAERS Safety Report 14497238 (Version 1)
Quarter: 2018Q1

REPORT INFORMATION
  Report Type: Spontaneous
  Country: DE (occurrence: DE)
  Receive Date: 20180207
  Receipt Date: 20180207
  Transmission Date: 20180509
  Serious: Yes (Hospitalization)
  Sender: FDA-Public Use
  Company Number: DE-AUROBINDO-AUR-APL-2018-005141

PATIENT
  Age: 62 Year
  Weight: 118 kg

DRUGS (7)
  1. TORASEMIDE [Suspect]
     Active Substance: TORSEMIDE
     Indication: OEDEMA PERIPHERAL
     Dosage: 5 MG, BID
     Route: 048
     Dates: start: 20131227
  2. TOREM                              /01036501/ [Concomitant]
     Active Substance: TORSEMIDE
     Indication: CHRONIC KIDNEY DISEASE
     Dosage: 5 MG, BID
     Route: 065
     Dates: start: 20131227
  3. RAMIPRIL. [Concomitant]
     Active Substance: RAMIPRIL
     Indication: HYPERTENSION
     Dosage: 5 MG, BID
     Route: 048
     Dates: start: 201304, end: 20140102
  4. PACLITAXEL. [Suspect]
     Active Substance: PACLITAXEL
     Indication: GASTRIC CANCER
     Dosage: 80 MG/M2, (D 1:8:15)
     Route: 042
     Dates: start: 20130930, end: 20131227
  5. EVEROLIMUS. [Suspect]
     Active Substance: EVEROLIMUS
     Indication: GASTRIC CANCER
     Dosage: 10 MG, QD
     Route: 048
     Dates: start: 20130930
  6. PACLITAXEL. [Suspect]
     Active Substance: PACLITAXEL
     Dosage: 80 MG/M2, (D 1:8:15)
     Route: 042
     Dates: start: 20140107
  7. HYDROCHLOROTHIAZIDE. [Concomitant]
     Active Substance: HYDROCHLOROTHIAZIDE
     Indication: CHRONIC KIDNEY DISEASE
     Dosage: 25 MG, QD
     Route: 048
     Dates: start: 201304

REACTIONS (1)
  - Acute kidney injury [Not Recovered/Not Resolved]

NARRATIVE: CASE EVENT DATE: 20140103
